FAERS Safety Report 10586912 (Version 1)
Quarter: 2014Q4

REPORT INFORMATION
  Report Type: Spontaneous
  Country: US (occurrence: None)
  Receive Date: 20141114
  Receipt Date: 20141114
  Transmission Date: 20150529
  Serious: Yes (Other)
  Sender: FDA-Public Use
  Company Number: None

PATIENT
  Age: 67 Year
  Sex: Female

DRUGS (2)
  1. ACTHAR [Suspect]
     Active Substance: CORTICOTROPIN
     Indication: ARTHRITIS
     Route: 058
     Dates: start: 20141022
  2. ACTHAR [Suspect]
     Active Substance: CORTICOTROPIN
     Route: 058
     Dates: start: 20141022

REACTIONS (2)
  - Eye swelling [None]
  - Condition aggravated [None]

NARRATIVE: CASE EVENT DATE: 20141112
